FAERS Safety Report 13760567 (Version 1)
Quarter: 2017Q3

REPORT INFORMATION
  Report Type: Spontaneous
  Country: PT (occurrence: PT)
  Receive Date: 20170717
  Receipt Date: 20170717
  Transmission Date: 20171127
  Serious: Yes (Hospitalization)
  Sender: FDA-Public Use
  Company Number: PHHY2017PT100172

PATIENT
  Age: 51 Year
  Sex: Male

DRUGS (1)
  1. FUROSEMIDE. [Suspect]
     Active Substance: FUROSEMIDE
     Indication: PRODUCT USED FOR UNKNOWN INDICATION
     Dosage: 40 MG, UNK
     Route: 065

REACTIONS (6)
  - Cyanosis central [Recovered/Resolved]
  - Fatigue [Recovered/Resolved]
  - Dyspnoea at rest [Recovered/Resolved]
  - Respiratory failure [Recovered/Resolved]
  - Oedema peripheral [Recovered/Resolved]
  - Asthenia [Recovered/Resolved]
